FAERS Safety Report 21738296 (Version 1)
Quarter: 2022Q4

REPORT INFORMATION
  Report Type: Report from Study
  Country: US (occurrence: US)
  Receive Date: 20221216
  Receipt Date: 20221216
  Transmission Date: 20230112
  Serious: No
  Sender: FDA-Public Use
  Company Number: US-ABBVIE-4234072

PATIENT
  Sex: Female

DRUGS (3)
  1. HUMIRA [Suspect]
     Active Substance: ADALIMUMAB
     Indication: Rheumatoid arthritis
     Dosage: CF
     Route: 058
  2. COVID-19 vaccine [Concomitant]
     Indication: COVID-19 immunisation
     Dosage: COVID VACCINE RECEIVED, MODERNA
  3. COVID-19 vaccine [Concomitant]
     Indication: COVID-19 immunisation
     Dosage: COVID BOOSTER VACCINE RECEIVED, MODERNA

REACTIONS (1)
  - Erythema [Recovering/Resolving]
